FAERS Safety Report 23158552 (Version 1)
Quarter: 2023Q4

REPORT INFORMATION
  Report Type: Other
  Country: IN (occurrence: None)
  Receive Date: 20231108
  Receipt Date: 20231108
  Transmission Date: 20240109
  Serious: Yes (Hospitalization)
  Sender: FDA-Public Use
  Company Number: IN-ROCHE-3320076

PATIENT
  Age: 64 Year
  Sex: Male
  Weight: 53 kg

DRUGS (1)
  1. TECENTRIQ [Suspect]
     Active Substance: ATEZOLIZUMAB
     Indication: Neuroendocrine tumour
     Dosage: 5TH CYCLE FOR THE 26TH DAY INSTEAD OF A 21-DAY DURATION, 6TH CYCLE FOR THE 27TH DAY INSTEAD OF 21 DA
     Route: 041
     Dates: start: 20230304

REACTIONS (6)
  - Neutropenia [Recovered/Resolved]
  - Off label use [Unknown]
  - Dysphonia [Unknown]
  - Cough [Unknown]
  - Decreased appetite [Unknown]
  - Disease progression [Unknown]
